FAERS Safety Report 20186269 (Version 1)
Quarter: 2021Q4

REPORT INFORMATION
  Report Type: Spontaneous
  Country: US (occurrence: US)
  Receive Date: 20211215
  Receipt Date: 20211215
  Transmission Date: 20220303
  Serious: No
  Sender: FDA-Public Use
  Company Number: US-APOTEX-2021AP001453

PATIENT
  Age: 25 Year
  Sex: Female

DRUGS (5)
  1. LITHIUM CARBONATE [Suspect]
     Active Substance: LITHIUM CARBONATE
     Indication: Bipolar disorder
     Dosage: UNK
     Route: 065
  2. LAMOTRIGINE [Concomitant]
     Active Substance: LAMOTRIGINE
     Indication: Bipolar disorder
     Dosage: UNK
     Route: 065
  3. CITALOPRAM [Concomitant]
     Active Substance: CITALOPRAM HYDROBROMIDE
     Indication: Bipolar disorder
     Dosage: UNK
     Route: 065
  4. ARIPIPRAZOLE [Concomitant]
     Active Substance: ARIPIPRAZOLE
     Indication: Bipolar disorder
     Dosage: UNK
     Route: 065
  5. ALPRAZOLAM [Concomitant]
     Active Substance: ALPRAZOLAM
     Indication: Bipolar disorder
     Dosage: UNK
     Route: 065

REACTIONS (2)
  - Essential tremor [Unknown]
  - Drug ineffective [Unknown]
